FAERS Safety Report 16188981 (Version 1)
Quarter: 2019Q2

REPORT INFORMATION
  Report Type: Spontaneous
  Country: US (occurrence: US)
  Receive Date: 20190412
  Receipt Date: 20190412
  Transmission Date: 20190711
  Serious: No
  Sender: FDA-Public Use
  Company Number: US-DRREDDYS-USA/USA/19/0109313

PATIENT
  Age: 45 Year
  Sex: Female
  Weight: 76.5 kg

DRUGS (1)
  1. HABITROL [Suspect]
     Active Substance: NICOTINE
     Indication: SMOKING CESSATION THERAPY
     Route: 062
     Dates: start: 20190404, end: 20190408

REACTIONS (3)
  - Product dose omission [Unknown]
  - Product use issue [Unknown]
  - Skin disorder [Unknown]

NARRATIVE: CASE EVENT DATE: 20190408
